FAERS Safety Report 9516757 (Version 2)
Quarter: 2014Q4

REPORT INFORMATION
  Report Type: Spontaneous
  Country: IE (occurrence: IE)
  Receive Date: 20130911
  Receipt Date: 20141215
  Transmission Date: 20150529
  Serious: Yes (Other)
  Sender: FDA-Public Use
  Company Number: IE-BAYER-2013-109577

PATIENT
  Sex: Female

DRUGS (1)
  1. MIRENA [Suspect]
     Active Substance: LEVONORGESTREL
     Dosage: 20 MCG/24HR, CONT
     Route: 015
     Dates: start: 20120611

REACTIONS (5)
  - Amenorrhoea [None]
  - Drug ineffective [None]
  - Varicella [None]
  - Pneumonia [None]
  - Pregnancy with contraceptive device [None]

NARRATIVE: CASE EVENT DATE: 201211
